FAERS Safety Report 24544368 (Version 4)
Quarter: 2024Q4

REPORT INFORMATION
  Report Type: Spontaneous
  Country: US (occurrence: US)
  Receive Date: 20241024
  Receipt Date: 20241125
  Transmission Date: 20250115
  Serious: Yes (Other)
  Sender: PFIZER
  Company Number: US-PFIZER INC-202400282575

PATIENT
  Age: 75 Year
  Sex: Female
  Weight: 65.32 kg

DRUGS (8)
  1. PAXLOVID [Interacting]
     Active Substance: NIRMATRELVIR\RITONAVIR
     Indication: COVID-19 treatment
     Dosage: UNK
     Dates: start: 20230609
  2. PAXLOVID [Interacting]
     Active Substance: NIRMATRELVIR\RITONAVIR
     Dosage: UNK UNK, 2X/DAY
     Dates: start: 20240923, end: 20240926
  3. ELIQUIS [Interacting]
     Active Substance: APIXABAN
     Dosage: 5 MG, 2X/DAY
  4. ATORVASTATIN [Interacting]
     Active Substance: ATORVASTATIN
     Dosage: UNK
  5. JARDIANCE [Concomitant]
     Active Substance: EMPAGLIFLOZIN
     Dosage: 10 MG
  6. METOPROLOL [Concomitant]
     Active Substance: METOPROLOL
     Indication: Blood pressure abnormal
     Dosage: UNK, 2X/DAY
  7. SPIRONOLACTONE [Concomitant]
     Active Substance: SPIRONOLACTONE
     Dosage: 25 MG
  8. VALSARTAN [Concomitant]
     Active Substance: VALSARTAN
     Dosage: 40 MG, 2X/DAY

REACTIONS (6)
  - Epistaxis [Unknown]
  - Drug interaction [Unknown]
  - Ear discomfort [Unknown]
  - Acute sinusitis [Unknown]
  - Dyspnoea [Recovering/Resolving]
  - Dizziness [Unknown]

NARRATIVE: CASE EVENT DATE: 20240901
